FAERS Safety Report 5407546-8 (Version None)
Quarter: 2007Q3

REPORT INFORMATION
  Report Type: 
  Country: None (occurrence: None)
  Receive Date: 20070807
  Receipt Date: 20070726
  Transmission Date: 20080115
  Serious: Yes (Life-Threatening)
  Sender: FDA-Public Use
  Company Number: AU-PFIZER INC-2006142320

PATIENT
  Sex: Female
  Weight: 79 kg

DRUGS (17)
  1. IDARUBICIN HCL [Suspect]
     Indication: ACUTE MYELOID LEUKAEMIA
     Route: 042
     Dates: start: 20061031, end: 20061102
  2. CYTARABINE [Suspect]
     Indication: ACUTE MYELOID LEUKAEMIA
     Route: 042
     Dates: start: 20061031, end: 20061107
  3. ETOPOSIDE [Suspect]
     Indication: ACUTE MYELOID LEUKAEMIA
     Route: 042
     Dates: start: 20061031, end: 20061106
  4. TAZOCIN [Concomitant]
     Route: 042
     Dates: start: 20061028, end: 20061108
  5. PHOSPHATE-SANDOZ [Concomitant]
     Route: 048
     Dates: start: 20061029, end: 20061031
  6. ACETAMINOPHEN [Concomitant]
     Route: 048
  7. POSACONAZOLE [Concomitant]
     Route: 048
     Dates: start: 20061031, end: 20061112
  8. PANTOPRAZOL [Concomitant]
     Route: 048
  9. ALL OTHER THERAPEUTIC PRODUCTS [Concomitant]
     Dates: start: 20061031, end: 20061111
  10. ONDANSETRON [Concomitant]
     Route: 042
  11. ONDANSETRON [Concomitant]
     Route: 048
  12. LEVLEN ED [Concomitant]
     Route: 048
  13. MAXOLON [Concomitant]
     Route: 042
  14. MAXOLON [Concomitant]
     Route: 048
  15. VANCOMYCIN [Concomitant]
     Route: 042
     Dates: start: 20061105, end: 20061116
  16. MEROPENEM [Concomitant]
     Route: 042
     Dates: start: 20061108, end: 20061123
  17. ACYCLOVIR [Concomitant]
     Route: 048

REACTIONS (1)
  - CARDIAC ARREST [None]
